FAERS Safety Report 4647215-5 (Version None)
Quarter: 2005Q2

REPORT INFORMATION
  Report Type: 
  Country: None (occurrence: None)
  Receive Date: 20050426
  Receipt Date: 20050414
  Transmission Date: 20051028
  Serious: Yes (Other)
  Sender: FDA-Public Use
  Company Number: HQWYE025714APR05

PATIENT
  Age: 81 Year
  Sex: Female

DRUGS (1)
  1. CORDARONE [Suspect]
     Dosage: 400 MG 1X PER 1 DAY ORAL
     Route: 048

REACTIONS (3)
  - MALAISE [None]
  - PARAESTHESIA [None]
  - SYNCOPE [None]
